FAERS Safety Report 4968579-9 (Version None)
Quarter: 2006Q2

REPORT INFORMATION
  Report Type: 
  Country: None (occurrence: None)
  Receive Date: 20060411
  Receipt Date: 20060331
  Transmission Date: 20061013
  Serious: Yes (Other)
  Sender: FDA-Public Use
  Company Number: AT-JNJFOC-20031204736

PATIENT
  Sex: Female

DRUGS (7)
  1. REMICADE [Suspect]
     Dosage: 2 INFUSIONS
     Route: 042
  2. REMICADE [Suspect]
     Indication: CROHN'S DISEASE
     Dosage: 2 INFUSIONS
     Route: 042
  3. MESALAZINE [Concomitant]
     Indication: CROHN'S DISEASE
     Route: 048
  4. ESOMEPRAZOLE [Concomitant]
     Route: 048
  5. NITROGLYCERIN [Concomitant]
  6. DIOSMINE [Concomitant]
     Indication: PROPHYLAXIS
     Route: 048
  7. BUDENOSIDE [Concomitant]
     Route: 048

REACTIONS (2)
  - LYMPHADENOPATHY [None]
  - TUBERCULOSIS [None]
